FAERS Safety Report 25919770 (Version 1)
Quarter: 2025Q4

REPORT INFORMATION
  Report Type: Spontaneous
  Country: US (occurrence: US)
  Receive Date: 20251014
  Receipt Date: 20251014
  Transmission Date: 20260119
  Serious: No
  Sender: BOTANIX PHARMACEUTICALS
  Company Number: US-BOTANIX PHARMACEUTICALS-2025BOT00245

PATIENT
  Sex: Female

DRUGS (2)
  1. SOFDRA [Suspect]
     Active Substance: SOFPIRONIUM BROMIDE
     Dosage: APPLY ONE PUMP TO EACH HAND AND EACH FOOT ONCE NIGHTLY AT BEDTIME AS NEEDED
     Route: 061
  2. SOFDRA [Suspect]
     Active Substance: SOFPIRONIUM BROMIDE
     Dosage: APPLY ONE PUMP TO EACH HAND AND EACH FOOT AT BEDTIME AS NEEDED; NOT USING EVERYDAY
     Route: 061

REACTIONS (3)
  - Sensitive skin [Not Recovered/Not Resolved]
  - Off label use [Not Recovered/Not Resolved]
  - Drug ineffective for unapproved indication [Not Recovered/Not Resolved]
